FAERS Safety Report 25480084 (Version 1)
Quarter: 2025Q2

REPORT INFORMATION
  Report Type: Spontaneous
  Country: US (occurrence: None)
  Receive Date: 20250625
  Receipt Date: 20250625
  Transmission Date: 20250716
  Serious: Yes (Hospitalization)
  Sender: FDA-CTU
  Company Number: None

PATIENT
  Age: 27 Year
  Sex: Female
  Weight: 87.75 kg

DRUGS (4)
  1. MEDROXYPROGESTERONE ACETATE [Suspect]
     Active Substance: MEDROXYPROGESTERONE ACETATE
     Indication: Contraception
     Route: 030
  2. NYSTATIN [Concomitant]
     Active Substance: NYSTATIN
  3. Labetolol 100 mg [Concomitant]
  4. Ferrous sulfate 325 mg [Concomitant]

REACTIONS (2)
  - Circulatory collapse [None]
  - Respiratory failure [None]

NARRATIVE: CASE EVENT DATE: 20250612
